FAERS Safety Report 5394977-8 (Version None)
Quarter: 2007Q3

REPORT INFORMATION
  Report Type: 
  Country: None (occurrence: None)
  Receive Date: 20070724
  Receipt Date: 20070718
  Transmission Date: 20080115
  Serious: Yes (Other)
  Sender: FDA-Public Use
  Company Number: PHNR2007AU01379

PATIENT
  Sex: Female

DRUGS (1)
  1. ZELNORM [Suspect]
     Dates: start: 20040101

REACTIONS (3)
  - EXTRASYSTOLES [None]
  - ISCHAEMIA [None]
  - VENTRICULAR TACHYCARDIA [None]
